FAERS Safety Report 10248616 (Version 3)
Quarter: 2014Q3

REPORT INFORMATION
  Report Type: Spontaneous
  Country: ES (occurrence: ES)
  Receive Date: 20140620
  Receipt Date: 20140804
  Transmission Date: 20150326
  Serious: Yes (Life-Threatening, Hospitalization, Other)
  Sender: FDA-Public Use
  Company Number: PHHY2014ES075820

PATIENT
  Age: 39 Year
  Sex: Male

DRUGS (2)
  1. GILENYA [Suspect]
     Active Substance: FINGOLIMOD HYDROCHLORIDE
     Indication: RELAPSING-REMITTING MULTIPLE SCLEROSIS
     Dosage: UNK UKN, QD
     Route: 048
     Dates: start: 201209, end: 201405
  2. CORTICOSTEROIDS [Suspect]
     Active Substance: CORTICOSTEROID NOS
     Indication: MUSCULAR WEAKNESS
     Dosage: 1000 MG, UNK
     Route: 042
     Dates: start: 20140521

REACTIONS (6)
  - Chest pain [Unknown]
  - Acute myocardial infarction [Recovered/Resolved]
  - Pain in jaw [Unknown]
  - Muscular weakness [Unknown]
  - Acute coronary syndrome [Recovered/Resolved]
  - Chest discomfort [Unknown]

NARRATIVE: CASE EVENT DATE: 20140521
